FAERS Safety Report 17045240 (Version 1)
Quarter: 2019Q4

REPORT INFORMATION
  Report Type: Report from Study
  Country: CA (occurrence: CA)
  Receive Date: 20191118
  Receipt Date: 20191118
  Transmission Date: 20200122
  Serious: Yes (Other)
  Sender: FDA-Public Use
  Company Number: CA-JNJFOC-20191112334

PATIENT

DRUGS (2)
  1. IBRUTINIB [Interacting]
     Active Substance: IBRUTINIB
     Indication: LYMPHOCYTIC LYMPHOMA
  2. IBRUTINIB [Suspect]
     Active Substance: IBRUTINIB
     Indication: CHRONIC LYMPHOCYTIC LEUKAEMIA
     Route: 048
     Dates: end: 201703

REACTIONS (19)
  - Arthralgia [Unknown]
  - Nail disorder [Unknown]
  - Cytopenia [Unknown]
  - Hair disorder [Unknown]
  - Skin disorder [Unknown]
  - Lower respiratory tract infection [Unknown]
  - Neoplasm malignant [Unknown]
  - Upper respiratory tract infection [Unknown]
  - Skin infection [Unknown]
  - Myalgia [Unknown]
  - Haemorrhage [Unknown]
  - Diarrhoea [Unknown]
  - Cardiac disorder [Unknown]
  - Mucosal disorder [Unknown]
  - Urinary tract infection [Unknown]
  - Drug interaction [Unknown]
  - Contusion [Unknown]
  - Nervous system disorder [Unknown]
  - Rash [Unknown]
